FAERS Safety Report 6332862-5 (Version None)
Quarter: 2009Q3

REPORT INFORMATION
  Report Type: 
  Country: None (occurrence: None)
  Receive Date: 20090828
  Receipt Date: 20090819
  Transmission Date: 20100115
  Serious: Yes (Other)
  Sender: FDA-Public Use
  Company Number: JP-ALLERGAN-0909647US

PATIENT
  Age: 10 Year
  Sex: Male
  Weight: 30 kg

DRUGS (7)
  1. ALESION SYRUP [Suspect]
     Indication: RHINITIS ALLERGIC
     Dosage: 1.2 G, QD
     Route: 048
     Dates: start: 20080201, end: 20081107
  2. ALESION SYRUP [Suspect]
     Indication: DERMATITIS ATOPIC
     Dosage: 1.5 G, QD
     Route: 048
     Dates: start: 20081108, end: 20090508
  3. ONON [Concomitant]
     Indication: ASTHMA
     Dosage: UNK, UNK
     Route: 048
     Dates: start: 20070620
  4. FLUTIDE [Concomitant]
     Indication: ASTHMA
     Dosage: UNK, UNK
     Route: 055
     Dates: start: 20070620
  5. ALMETA [Concomitant]
     Indication: DERMATITIS ATOPIC
     Dosage: UNK, UNK
     Route: 062
     Dates: start: 20071201
  6. NEO-MEDROL [Concomitant]
     Indication: DERMATITIS ATOPIC
     Dosage: UNK, UNK
     Route: 062
     Dates: start: 20071201
  7. FLUNASE [Concomitant]
     Indication: RHINITIS ALLERGIC
     Route: 055
     Dates: start: 20080322

REACTIONS (1)
  - CONVULSION [None]
